FAERS Safety Report 22154987 (Version 1)
Quarter: 2023Q1

REPORT INFORMATION
  Report Type: Spontaneous
  Country: CA (occurrence: None)
  Receive Date: 20230330
  Receipt Date: 20230330
  Transmission Date: 20230417
  Serious: Yes (Hospitalization)
  Sender: FDA-Public Use
  Company Number: 2023A072237

PATIENT
  Age: 57 Year
  Sex: Male
  Weight: 66 kg

DRUGS (7)
  1. BRILINTA [Suspect]
     Active Substance: TICAGRELOR
     Indication: Stent placement
     Route: 048
  2. BRILINTA [Suspect]
     Active Substance: TICAGRELOR
     Indication: Cardiovascular event prophylaxis
     Route: 048
  3. ASPIRIN [Suspect]
     Active Substance: ASPIRIN
     Indication: Stent placement
     Route: 048
  4. ASPIRIN [Suspect]
     Active Substance: ASPIRIN
     Indication: Cardiovascular event prophylaxis
     Route: 048
  5. LIPITOR [Concomitant]
     Active Substance: ATORVASTATIN CALCIUM
  6. METOPROLOL [Concomitant]
     Active Substance: METOPROLOL
  7. NITROLINGUAL PUMPSPRAY [Concomitant]
     Active Substance: NITROGLYCERIN

REACTIONS (4)
  - Gastric ulcer [Recovered/Resolved]
  - Diarrhoea [Recovered/Resolved]
  - Duodenal ulcer haemorrhage [Recovered/Resolved]
  - Haematochezia [Recovered/Resolved]
